FAERS Safety Report 9182455 (Version 1)
Quarter: 2012Q4

REPORT INFORMATION
  Report Type: 
  Country: US (occurrence: US)
  Receive Date: 20121030
  Receipt Date: 20121030
  Transmission Date: 20130627
  Serious: No
  Sender: FDA-Public Use
  Company Number: US-GLAXOSMITHKLINE-A0982322A

PATIENT
  Age: 55 Year
  Sex: Female

DRUGS (5)
  1. IMITREX [Suspect]
     Indication: MIGRAINE
     Route: 045
     Dates: start: 201202
  2. AMLODIPINE [Concomitant]
  3. BENAZAPRIL [Concomitant]
  4. PRAVASTATIN [Concomitant]
  5. DEXILANT [Concomitant]

REACTIONS (2)
  - Nasal dryness [Not Recovered/Not Resolved]
  - Cholecystectomy [Unknown]
